FAERS Safety Report 5527519-4 (Version None)
Quarter: 2007Q4

REPORT INFORMATION
  Report Type: 
  Country: None (occurrence: None)
  Receive Date: 20071121
  Receipt Date: 20071106
  Transmission Date: 20080405
  Serious: Yes (Other)
  Sender: FDA-Public Use
  Company Number: B0495710A

PATIENT
  Age: 41 Year
  Sex: Male

DRUGS (6)
  1. LAMIVUDINE                                (FORMULATION UNKNOWN) (GENER [Suspect]
     Indication: HIV INFECTION
  2. TENOFOVIR DISOPROXIL FUMARATE [Suspect]
     Indication: HIV INFECTION
  3. LOPINAVIR + RITONAVIR  (FORMULATION UNKNOWN) [Suspect]
     Indication: HIV INFECTION
  4. EFAVIRENZ                               (FORMULATION UNKNOWN) (EFAVIRE [Suspect]
     Indication: HIV INFECTION
  5. RETROVIR [Suspect]
     Indication: HIV INFECTION
  6. ABACAVIR SULPHATE             (FORMULATION UNKNOWN) [Suspect]
     Indication: HIV INFECTION

REACTIONS (5)
  - ANAEMIA [None]
  - DISEASE RECURRENCE [None]
  - HEPATITIS C VIRUS [None]
  - NO THERAPEUTIC RESPONSE [None]
  - VIRAEMIA [None]
